FAERS Safety Report 7492849-6 (Version None)
Quarter: 2011Q2

REPORT INFORMATION
  Report Type: 
  Country: None (occurrence: None)
  Receive Date: 20110520
  Receipt Date: 20110506
  Transmission Date: 20111010
  Serious: Yes (Other)
  Sender: FDA-Public Use
  Company Number: GB-RANBAXY-2011RR-44142

PATIENT
  Age: 78 Year
  Sex: Female

DRUGS (5)
  1. ATENOLOL [Suspect]
  2. ISOSORBIDE DINITRATE [Suspect]
  3. SIMVASTATIN [Suspect]
     Dosage: 20 MG, QD
  4. PREDNISOLONE [Suspect]
     Indication: TEMPORAL ARTERITIS
     Dosage: 9 MG, QD
  5. OMEPRAZOLE [Suspect]
     Indication: TEMPORAL ARTERITIS
     Dosage: 20 MG, QD

REACTIONS (1)
  - CUTANEOUS LUPUS ERYTHEMATOSUS [None]
